FAERS Safety Report 6614604-9 (Version None)
Quarter: 2010Q1

REPORT INFORMATION
  Report Type: 
  Country: None (occurrence: None)
  Receive Date: 20100226
  Receipt Date: 20100216
  Transmission Date: 20100710
  Serious: Yes (Death)
  Sender: FDA-Public Use
  Company Number: 2010020034

PATIENT
  Age: 33 Year
  Sex: Male

DRUGS (11)
  1. ONSOLIS [Suspect]
     Indication: CANCER PAIN
     Dosage: TO BE TITRATED (Q 4-6 HOURS PRN, UP TO 4 DOSES DAILY),BU
     Route: 002
     Dates: start: 20091105
  2. OXYCONTIN [Concomitant]
  3. NEURONTIN [Concomitant]
  4. METFORMIN HCL [Concomitant]
  5. DECADRON [Concomitant]
  6. LISINOPRIL [Concomitant]
  7. BACLOFEN [Concomitant]
  8. VALIUM [Concomitant]
  9. METHADONE HCL [Concomitant]
  10. PERCOCET [Concomitant]
  11. CELEXA [Concomitant]

REACTIONS (2)
  - BRAIN CANCER METASTATIC [None]
  - MALIGNANT NEOPLASM PROGRESSION [None]
